FAERS Safety Report 13706260 (Version 4)
Quarter: 2017Q3

REPORT INFORMATION
  Report Type: Spontaneous
  Country: FR (occurrence: FR)
  Receive Date: 20170630
  Receipt Date: 20170809
  Transmission Date: 20171127
  Serious: Yes (Hospitalization, Disabling, Other)
  Sender: FDA-Public Use
  Company Number: FR-PFIZER INC-2017278257

PATIENT
  Age: 47 Year
  Sex: Female

DRUGS (22)
  1. CHLORAMINOPHENE [Concomitant]
     Active Substance: CHLORAMBUCIL
     Dosage: UNK
     Route: 048
     Dates: start: 1996, end: 1997
  2. KARDEGIC [Concomitant]
     Active Substance: ASPIRIN LYSINE
     Dosage: 75 MG, DAILY
  3. LEVOTHYROX [Concomitant]
     Active Substance: LEVOTHYROXINE
     Dosage: 100 UG, DAILY
  4. AMLOR [Concomitant]
     Active Substance: AMLODIPINE BESYLATE
     Dosage: 10 MG, DAILY
  5. ENDOXAN [Suspect]
     Active Substance: CYCLOPHOSPHAMIDE
     Dosage: 500 MG PER COURSE
     Route: 041
     Dates: start: 20160727, end: 20161027
  6. INEXIUM [Concomitant]
     Active Substance: ESOMEPRAZOLE
     Dosage: 40 MG, DAILY
  7. LEXOMIL [Concomitant]
     Active Substance: BROMAZEPAM
     Dosage: 6 MG, DAILY
  8. ONCOVIN [Concomitant]
     Active Substance: VINCRISTINE SULFATE
     Indication: EXTRANODAL MARGINAL ZONE B-CELL LYMPHOMA (MALT TYPE)
     Dosage: UNK, CYCLIC
     Route: 041
     Dates: start: 200011, end: 200104
  9. SOLUPRED [Concomitant]
     Active Substance: PREDNISOLONE
     Indication: EXTRANODAL MARGINAL ZONE B-CELL LYMPHOMA (MALT TYPE)
     Dosage: UNK, CYCLIC
     Route: 041
     Dates: start: 200011, end: 200104
  10. SOLUPRED [Concomitant]
     Active Substance: PREDNISOLONE
     Dosage: 20 MG, DAILY
  11. FOLIC ACID. [Concomitant]
     Active Substance: FOLIC ACID
     Dosage: 5 MG, DAILY
  12. EUPRESSYL [Concomitant]
     Active Substance: URAPIDIL
     Dosage: 60 MG, TWICE A DAY
  13. KAYEXALATE [Concomitant]
     Active Substance: SODIUM POLYSTYRENE SULFONATE
     Dosage: 1 CM3 PER WEEK
  14. LASILIX [Concomitant]
     Active Substance: FUROSEMIDE
     Dosage: 250 MG, DAILY
  15. MESNA. [Concomitant]
     Active Substance: MESNA
     Dosage: 100 MG, UNK
  16. KAYEXALATE [Concomitant]
     Active Substance: SODIUM POLYSTYRENE SULFONATE
     Dosage: 4 DF, WEEKLY (1 TABLET FOUR TIMES A WEEK)
  17. ADRIBLASTINE [Suspect]
     Active Substance: DOXORUBICIN
     Indication: EXTRANODAL MARGINAL ZONE B-CELL LYMPHOMA (MALT TYPE)
     Dosage: UNK, CYCLIC
     Route: 042
     Dates: start: 200011, end: 200104
  18. FOLIC ACID. [Concomitant]
     Active Substance: FOLIC ACID
     Dosage: 5 MG, WEEKLY
  19. BACTRIM [Concomitant]
     Active Substance: SULFAMETHOXAZOLE\TRIMETHOPRIM
     Dosage: UNK, 3 TIMES A WEEK
  20. ENDOXAN [Suspect]
     Active Substance: CYCLOPHOSPHAMIDE
     Indication: EXTRANODAL MARGINAL ZONE B-CELL LYMPHOMA (MALT TYPE)
     Dosage: UNK, CYCLIC
     Route: 041
     Dates: start: 200011, end: 200104
  21. CHLORAMINOPHENE [Concomitant]
     Active Substance: CHLORAMBUCIL
     Indication: EXTRANODAL MARGINAL ZONE B-CELL LYMPHOMA (MALT TYPE)
     Dosage: UNK
     Route: 048
     Dates: start: 1994, end: 1995
  22. LASILIX [Concomitant]
     Active Substance: FUROSEMIDE
     Dosage: 80 MG, DAILY

REACTIONS (11)
  - Anti-neutrophil cytoplasmic antibody positive vasculitis [Unknown]
  - Acute pulmonary oedema [Unknown]
  - Pulmonary alveolar haemorrhage [Unknown]
  - Raynaud^s phenomenon [Unknown]
  - Haemorrhage [Unknown]
  - Hypertension [Unknown]
  - Renal injury [Unknown]
  - Deep vein thrombosis [Unknown]
  - Dyspnoea [Unknown]
  - Congestive cardiomyopathy [Recovered/Resolved with Sequelae]
  - Anaemia [Unknown]

NARRATIVE: CASE EVENT DATE: 200903
